FAERS Safety Report 9321533 (Version 3)
Quarter: 2013Q3

REPORT INFORMATION
  Report Type: Spontaneous
  Country: BR (occurrence: BR)
  Receive Date: 20130531
  Receipt Date: 20130808
  Transmission Date: 20140515
  Serious: Yes (Other)
  Sender: FDA-Public Use
  Company Number: BR-NOVOPROD-378777

PATIENT
  Age: 76 Year
  Sex: Female

DRUGS (8)
  1. LEVEMIR FLEXPEN [Suspect]
     Indication: DIABETES MELLITUS
     Dosage: UNK
     Route: 058
     Dates: start: 2008
  2. LEVEMIR FLEXPEN [Suspect]
     Dosage: 10 U, UNK
     Route: 058
     Dates: start: 2012
  3. LEVEMIR FLEXPEN [Suspect]
     Dosage: 80 U (50 UNITS + 30 UNITS)
     Route: 058
     Dates: start: 201208
  4. LEVEMIR FLEXPEN [Suspect]
     Dosage: 300 U, UNK
     Route: 058
  5. LEVEMIR FLEXPEN [Suspect]
     Dosage: 170 U, UNK (110 U + 60 U)
     Route: 058
     Dates: start: 201304, end: 201305
  6. NOVORAPID [Suspect]
     Indication: DIABETES MELLITUS
     Dosage: UNK
     Route: 058
  7. NOVORAPID [Suspect]
     Dosage: 28 U, TID
     Route: 058
     Dates: start: 201304, end: 201305
  8. LANTUS [Suspect]
     Indication: PRODUCT USED FOR UNKNOWN INDICATION
     Dosage: 150 U, UNK
     Route: 065
     Dates: start: 201305

REACTIONS (9)
  - Metastases to peritoneum [Not Recovered/Not Resolved]
  - Breast cancer [Not Recovered/Not Resolved]
  - Blood glucose increased [Recovered/Resolved]
  - Hypoglycaemia [Unknown]
  - Product quality issue [Unknown]
  - Diabetes mellitus inadequate control [Unknown]
  - Drug ineffective [Unknown]
  - Device leakage [Unknown]
  - Blood glucose fluctuation [Unknown]
